FAERS Safety Report 5624922-9 (Version None)
Quarter: 2008Q1

REPORT INFORMATION
  Report Type: 
  Country: None (occurrence: None)
  Receive Date: 20080208
  Receipt Date: 20080117
  Transmission Date: 20080703
  Serious: Yes (Hospitalization, Disabling)
  Sender: FDA-Public Use
  Company Number: 09920071600

PATIENT
  Sex: Female

DRUGS (3)
  1. LANREOTIDE AUTOGEL            (LANREOTIDE ACETATE) [Suspect]
     Indication: ACROMEGALY
     Dosage: SUBCUTANEOUS
     Route: 058
     Dates: start: 20050928, end: 20051208
  2. LERICANIDIPIN [Suspect]
  3. HYDROCHLOROTHIAZIDE W/LOSARTAN [Concomitant]

REACTIONS (1)
  - INJECTION SITE NECROSIS [None]
